FAERS Safety Report 5856852-1 (Version None)
Quarter: 2008Q3

REPORT INFORMATION
  Report Type: 
  Country: None (occurrence: None)
  Receive Date: 20080825
  Receipt Date: 20080820
  Transmission Date: 20090109
  Serious: Yes (Life-Threatening, Hospitalization, Other)
  Sender: FDA-Public Use
  Company Number: PHHO2008DE09314

PATIENT
  Sex: Male
  Weight: 85 kg

DRUGS (13)
  1. STI571/CGP57148B T35717+CAPS [Suspect]
     Indication: PROSTATE CANCER
     Dosage: 400 MG, UNK
     Route: 048
     Dates: start: 20080605, end: 20080724
  2. STI571/CGP57148B T35717+CAPS [Suspect]
     Dosage: UNK MG, UNK
     Route: 048
     Dates: start: 20080820
  3. OVASTAT [Concomitant]
     Dosage: 250MG BID
  4. ARCOXIA [Concomitant]
     Indication: PROSTATE CANCER
     Dosage: 60MG
     Dates: start: 20080605
  5. FORTECORTIN [Concomitant]
     Indication: PROSTATE CANCER
     Dosage: 0.5MG BID
     Dates: start: 20080605
  6. ACTOS [Concomitant]
     Indication: PROSTATE CANCER
     Dosage: 0.5MG BID
     Dates: start: 20080605
  7. CIPRO [Concomitant]
  8. MERONEM [Concomitant]
  9. PREDNISOLON [Concomitant]
  10. ACTRAPID [Concomitant]
  11. FOLSAEURE [Concomitant]
  12. TORSEMIDE [Concomitant]
  13. NYSTATIN [Concomitant]

REACTIONS (22)
  - ABSCESS BACTERIAL [None]
  - ANAEMIA [None]
  - CARDIAC FAILURE [None]
  - CARDIAC FAILURE CHRONIC [None]
  - DRUG ERUPTION [None]
  - DYSPNOEA [None]
  - ELECTROCARDIOGRAM ST SEGMENT DEPRESSION [None]
  - ELECTROCARDIOGRAM T WAVE INVERSION [None]
  - ERYSIPELOID [None]
  - GLOMERULAR FILTRATION RATE DECREASED [None]
  - HAEMATOMA [None]
  - HERPES ZOSTER [None]
  - HYPERTENSIVE HEART DISEASE [None]
  - LEUKOPENIA [None]
  - LUNG INFILTRATION [None]
  - ORAL CANDIDIASIS [None]
  - PLEURAL EFFUSION [None]
  - PNEUMONIA [None]
  - PURULENT DISCHARGE [None]
  - RENAL FAILURE CHRONIC [None]
  - STAPHYLOCOCCAL INFECTION [None]
  - SWELLING [None]
